FAERS Safety Report 7961597 (Version 6)
Quarter: 2015Q2

REPORT INFORMATION
  Report Type: Spontaneous
  Country: RS (occurrence: RS)
  Receive Date: 20110526
  Receipt Date: 20150414
  Transmission Date: 20150821
  Serious: Yes (Death, Hospitalization, Other)
  Sender: FDA-Public Use
  Company Number: RS-AMGEN-SRBSP2011026167

PATIENT
  Age: 12 Year
  Sex: Female
  Weight: 43 kg

DRUGS (4)
  1. IMURAN [Concomitant]
     Active Substance: AZATHIOPRINE
     Dosage: 50 MG, 1X/DAY
     Dates: start: 200903, end: 2011
  2. ENBREL [Suspect]
     Active Substance: ETANERCEPT
     Indication: JUVENILE IDIOPATHIC ARTHRITIS
     Dosage: 25 MG, WEEKLY (0.4 MG/KG, 2X/WEEK)
     Route: 058
     Dates: start: 200603, end: 2011
  3. PRONISON [Concomitant]
     Active Substance: PREDNISONE
     Dosage: 30 MG, 1X/DAY
     Dates: start: 2003
  4. BACTRIM [Concomitant]
     Active Substance: SULFAMETHOXAZOLE\TRIMETHOPRIM
     Dosage: UNK

REACTIONS (8)
  - Juvenile idiopathic arthritis [Unknown]
  - Pneumocystis jirovecii infection [Fatal]
  - Hepatorenal failure [Fatal]
  - Disseminated intravascular coagulation [Fatal]
  - Histiocytosis haematophagic [Fatal]
  - Disease progression [Unknown]
  - Bronchitis [Unknown]
  - Pyrexia [Unknown]

NARRATIVE: CASE EVENT DATE: 201101
